FAERS Safety Report 5179799-5 (Version None)
Quarter: 2006Q4

REPORT INFORMATION
  Report Type: 
  Country: None (occurrence: None)
  Receive Date: 20061219
  Receipt Date: 20061106
  Transmission Date: 20070319
  Serious: Yes (Hospitalization, Other)
  Sender: FDA-Public Use
  Company Number: JP-MERCK-0612USA00401

PATIENT
  Age: 86 Year
  Sex: Female

DRUGS (5)
  1. FOSAMAX [Suspect]
     Indication: OSTEOPOROSIS
     Route: 048
     Dates: start: 20061104, end: 20061104
  2. CALCIUM ASPARTATE [Suspect]
     Indication: OSTEOPOROSIS
     Route: 048
     Dates: start: 20061105
  3. SENNA EXTRACT [Suspect]
     Indication: CONSTIPATION
     Route: 048
     Dates: start: 20061102, end: 20061105
  4. ALFACALCIDOL [Concomitant]
     Indication: OSTEOPOROSIS
     Route: 048
     Dates: end: 20061104
  5. CEFTRIAXONE [Concomitant]
     Indication: ILEUS
     Route: 042
     Dates: start: 20061102, end: 20061102

REACTIONS (3)
  - ILEUS [None]
  - PRURITUS [None]
  - PURPURA [None]
